FAERS Safety Report 11637247 (Version 1)
Quarter: 2015Q4

REPORT INFORMATION
  Report Type: Spontaneous
  Country: US (occurrence: US)
  Receive Date: 20151016
  Receipt Date: 20151016
  Transmission Date: 20160304
  Serious: No
  Sender: FDA-Public Use
  Company Number: US-GALDERMA-US15006071

PATIENT
  Age: 47 Year
  Sex: Male

DRUGS (4)
  1. SOOLANTRA [Suspect]
     Active Substance: IVERMECTIN
     Indication: ROSACEA
     Dosage: 1%
     Route: 061
     Dates: start: 20150713, end: 20150718
  2. BANANA BOAT SUNCREEN (WITH ZINC) [Concomitant]
     Route: 061
  3. IVORY SOAP CLEANSER ON HANDS [Concomitant]
     Indication: THERAPEUTIC SKIN CARE TOPICAL
     Route: 061
  4. DOVE SENSITIVE SKIN BEAUTY BAR [Concomitant]
     Indication: THERAPEUTIC SKIN CARE TOPICAL
     Route: 061

REACTIONS (3)
  - Rosacea [Recovered/Resolved]
  - Drug ineffective [Recovered/Resolved]
  - Rash macular [Recovered/Resolved]

NARRATIVE: CASE EVENT DATE: 20150715
